FAERS Safety Report 5638986-X (Version None)
Quarter: 2008Q1

REPORT INFORMATION
  Report Type: 
  Country: None (occurrence: None)
  Receive Date: 20080225
  Receipt Date: 20080225
  Transmission Date: 20080703
  Serious: Yes (Hospitalization)
  Sender: FDA-Public Use
  Company Number: None

PATIENT
  Sex: Male
  Weight: 108 kg

DRUGS (2)
  1. CISPLATIN [Suspect]
     Dosage: 168 MG
     Dates: end: 20080206
  2. GEMCITABINE HCL [Suspect]
     Dosage: 2016 MG
     Dates: end: 20080206

REACTIONS (3)
  - BLOOD CREATININE INCREASED [None]
  - GRAND MAL CONVULSION [None]
  - THROMBOCYTOPENIA [None]
